FAERS Safety Report 4683366-7 (Version None)
Quarter: 2005Q2

REPORT INFORMATION
  Report Type: 
  Country: None (occurrence: None)
  Receive Date: 20050606
  Receipt Date: 20050606
  Transmission Date: 20051028
  Serious: Yes (Life-Threatening, Hospitalization)
  Sender: FDA-Public Use
  Company Number: None

PATIENT
  Age: 62 Year
  Sex: Female

DRUGS (8)
  1. HYDROMOPRHONE [Suspect]
     Indication: ABDOMINAL PAIN
     Dosage: 0.4 + 0.5 MG QH + Q20 MIN INTRAVENOU
     Route: 042
     Dates: start: 20050419, end: 20050419
  2. PROMETHAZINE [Suspect]
     Indication: NAUSEA
     Dates: start: 20050419, end: 20050419
  3. PROMETHAZINE [Suspect]
     Indication: VOMITING
     Dates: start: 20050419, end: 20050419
  4. VALSARTAN [Concomitant]
  5. ALBUTEROL [Concomitant]
  6. FLUTICASONE PROPIONATE [Concomitant]
  7. MEPERIDINE [Concomitant]
  8. ALBUTEROL SULFATE AND IPRATROPIUM BROMIDE [Concomitant]

REACTIONS (3)
  - CARDIO-RESPIRATORY ARREST [None]
  - OXYGEN SATURATION DECREASED [None]
  - RESPIRATORY DEPRESSION [None]
